FAERS Safety Report 5609851-9 (Version None)
Quarter: 2008Q1

REPORT INFORMATION
  Report Type: 
  Country: None (occurrence: None)
  Receive Date: 20080131
  Receipt Date: 20080118
  Transmission Date: 20080703
  Serious: Yes (Hospitalization, Other)
  Sender: FDA-Public Use
  Company Number: IT-ELI_LILLY_AND_COMPANY-IT200801004217

PATIENT
  Age: 63 Year
  Sex: Female

DRUGS (5)
  1. DULOXETINE HYDROCHLORIDE [Suspect]
     Indication: DEPRESSION
     Dosage: 60 MG, DAILY (1/D)
     Route: 065
  2. ACENOCOUMAROL [Concomitant]
     Indication: MITRAL VALVE REPLACEMENT
     Dosage: 8-10 MG PER WEEK
     Route: 065
  3. ACENOCOUMAROL [Concomitant]
     Dosage: 12 MG PER WEEK
     Route: 065
  4. ACENOCOUMAROL [Concomitant]
     Dosage: 9 MG PER WEEK
     Route: 065
  5. MEMANTINE HCL [Concomitant]
     Indication: DEMENTIA ALZHEIMER'S TYPE
     Dosage: 20 MG, DAILY (1/D)
     Route: 065

REACTIONS (4)
  - DRUG INTERACTION [None]
  - HEADACHE [None]
  - HYPERTENSIVE CRISIS [None]
  - INTERNATIONAL NORMALISED RATIO DECREASED [None]
